FAERS Safety Report 10562236 (Version 1)
Quarter: 2014Q4

REPORT INFORMATION
  Report Type: Spontaneous
  Country: JP (occurrence: None)
  Receive Date: 20141031
  Receipt Date: 20141031
  Transmission Date: 20150529
  Serious: Yes (Life-Threatening)
  Sender: FDA-Public Use
  Company Number: IMP_07985_2014

PATIENT
  Age: 2 Month
  Sex: Male

DRUGS (4)
  1. DIVALPROEX [Suspect]
     Active Substance: DIVALPROEX SODIUM
     Dosage: DF
     Route: 064
  2. OXYGEN. [Concomitant]
     Active Substance: OXYGEN
  3. SEVOFLURANE. [Concomitant]
     Active Substance: SEVOFLURANE
  4. NITROUS OXIDE. [Concomitant]
     Active Substance: NITROUS OXIDE

REACTIONS (4)
  - Maternal drugs affecting foetus [None]
  - Laryngeal web [None]
  - Foetal anticonvulsant syndrome [None]
  - Tracheal stenosis [None]
